FAERS Safety Report 21774976 (Version 1)
Quarter: 2022Q4

REPORT INFORMATION
  Report Type: Spontaneous
  Country: US (occurrence: US)
  Receive Date: 20221225
  Receipt Date: 20221225
  Transmission Date: 20230112
  Serious: Yes (Hospitalization, Other)
  Sender: FDA-Public Use
  Company Number: US-AUROBINDO-AUR-APL-2022-054504

PATIENT
  Age: 29 Year
  Sex: Male

DRUGS (1)
  1. KETAMINE HYDROCHLORIDE [Suspect]
     Active Substance: KETAMINE HYDROCHLORIDE
     Indication: Product used for unknown indication
     Dosage: 8 GRAM, ONCE A DAY
     Route: 065

REACTIONS (7)
  - Acute kidney injury [Recovered/Resolved]
  - Liver injury [Recovering/Resolving]
  - Unresponsive to stimuli [Recovering/Resolving]
  - Urinary tract disorder [Recovering/Resolving]
  - Hyponatraemia [Recovering/Resolving]
  - Overdose [Unknown]
  - Intentional product misuse [Unknown]
